FAERS Safety Report 13331502 (Version 1)
Quarter: 2017Q1

REPORT INFORMATION
  Report Type: Spontaneous
  Country: CH (occurrence: CH)
  Receive Date: 20170313
  Receipt Date: 20170313
  Transmission Date: 20170428
  Serious: Yes (Hospitalization)
  Sender: FDA-Public Use
  Company Number: CH-BAYER-2017-043350

PATIENT
  Age: 91 Year
  Sex: Female
  Weight: 39 kg

DRUGS (7)
  1. OPTIFEN [Suspect]
     Active Substance: IBUPROFEN
     Dosage: 400 MG, UNK
     Route: 048
  2. ASPIRIN CARDIO 100 MG [Suspect]
     Active Substance: ASPIRIN
     Dosage: 100 MG, QD
     Route: 048
  3. MIRTAZAPIN [Interacting]
     Active Substance: MIRTAZAPINE
     Indication: INCREASED APPETITE
     Dosage: UNK
     Route: 048
  4. QUETIAPINE. [Interacting]
     Active Substance: QUETIAPINE
     Dosage: 25 MG, QD
  5. CONDROSULF [Concomitant]
     Active Substance: SODIUM CHONDROITIN SULFATE
     Dosage: 800 MG, QD
  6. SERESTA [Suspect]
     Active Substance: OXAZEPAM
     Dosage: 15 MG, UNK
     Dates: end: 20161217
  7. MAGNESIA S. PELLEGRINO [Concomitant]
     Dosage: UNK

REACTIONS (3)
  - Confusional state [Unknown]
  - Hallucination, visual [Recovering/Resolving]
  - Delirium [Unknown]

NARRATIVE: CASE EVENT DATE: 20161208
